FAERS Safety Report 23769879 (Version 1)
Quarter: 2024Q2

REPORT INFORMATION
  Report Type: Spontaneous
  Country: CA (occurrence: CA)
  Receive Date: 20240422
  Receipt Date: 20240422
  Transmission Date: 20240716
  Serious: Yes (Hospitalization, Other)
  Sender: FDA-Public Use
  Company Number: CA-GENEYORK-2024PPLIT00030

PATIENT
  Age: 16 Year
  Sex: Female

DRUGS (1)
  1. PREDNISONE [Suspect]
     Active Substance: PREDNISONE
     Indication: Systemic mastocytosis
     Route: 065

REACTIONS (6)
  - Failure to thrive [Unknown]
  - Osteoporosis [Unknown]
  - Idiopathic intracranial hypertension [Unknown]
  - Epiphyses delayed fusion [Unknown]
  - Adrenal insufficiency [Unknown]
  - Off label use [Unknown]
